FAERS Safety Report 4414316-6 (Version None)
Quarter: 2004Q2

REPORT INFORMATION
  Report Type: 
  Country: None (occurrence: None)
  Receive Date: 20040630
  Receipt Date: 20040309
  Transmission Date: 20050107
  Serious: No
  Sender: FDA-Public Use
  Company Number: 04P-163-0252767-00

PATIENT
  Age: 80 Year
  Sex: Female
  Weight: 68.0396 kg

DRUGS (7)
  1. HUMIRA [Suspect]
     Indication: RHEUMATOID ARTHRITIS
     Dosage: 40 MG, 1 IN 2 WK, SUBCUTANEOUS
     Route: 058
     Dates: start: 20031001
  2. HUMULIN INSULIN [Concomitant]
  3. FUROSEMIDE [Concomitant]
  4. AMLODIPINE BESYLATE [Concomitant]
  5. ATENOLOL [Concomitant]
  6. DIOVAN [Concomitant]
  7. ASPIRIN [Concomitant]

REACTIONS (1)
  - RASH PRURITIC [None]
